FAERS Safety Report 5391922-6 (Version None)
Quarter: 2007Q3

REPORT INFORMATION
  Report Type: 
  Country: None (occurrence: None)
  Receive Date: 20070720
  Receipt Date: 20070710
  Transmission Date: 20080115
  Serious: Yes (Hospitalization, Other)
  Sender: FDA-Public Use
  Company Number: PHRM2007FR01836

PATIENT
  Age: 75 Year
  Sex: Female
  Weight: 33 kg

DRUGS (2)
  1. LEPONEX [Suspect]
     Indication: PERSECUTORY DELUSION
     Dosage: 25 MG, BID
     Route: 048
     Dates: start: 20060701
  2. SERESTA [Concomitant]
     Route: 048

REACTIONS (7)
  - AGITATION [None]
  - CHOKING [None]
  - CONDITION AGGRAVATED [None]
  - LUNG DISORDER [None]
  - PERSECUTORY DELUSION [None]
  - SALIVARY HYPERSECRETION [None]
  - SPEECH DISORDER [None]
